FAERS Safety Report 8914702 (Version 3)
Quarter: 2012Q4

REPORT INFORMATION
  Report Type: Report from Study
  Country: CA (occurrence: CA)
  Receive Date: 20121119
  Receipt Date: 20121207
  Transmission Date: 20130627
  Serious: Yes (Death, Hospitalization)
  Sender: FDA-Public Use
  Company Number: CA-ABBOTT-12P-028-0991412-00

PATIENT
  Sex: Male

DRUGS (1)
  1. HUMIRA [Suspect]
     Indication: RHEUMATOID ARTHRITIS
     Route: 058
     Dates: start: 20120628

REACTIONS (5)
  - Rheumatoid lung [Fatal]
  - Pleurisy [Fatal]
  - Dyspnoea [Fatal]
  - Infection [Fatal]
  - Infection [Fatal]
